FAERS Safety Report 5050314-X (Version None)
Quarter: 2006Q3

REPORT INFORMATION
  Report Type: 
  Country: None (occurrence: None)
  Receive Date: 20060706
  Receipt Date: 20060621
  Transmission Date: 20061208
  Serious: Yes (Hospitalization)
  Sender: FDA-Public Use
  Company Number: 2006PV015586

PATIENT
  Age: 60 Year
  Sex: Female
  Weight: 89.8122 kg

DRUGS (12)
  1. BYETTA [Suspect]
     Indication: DIABETES MELLITUS NON-INSULIN-DEPENDENT
     Dosage: 5 MCG; BID; SC
     Route: 058
     Dates: start: 20051125, end: 20060315
  2. BYETTA [Suspect]
     Indication: DIABETES MELLITUS NON-INSULIN-DEPENDENT
     Dosage: 5 MCG; BID; SC
     Route: 058
     Dates: start: 20060605
  3. GLUCOPHAGE [Concomitant]
  4. LANTUS [Concomitant]
  5. AMARYL [Concomitant]
  6. WARFARIN SODIUM [Concomitant]
  7. PANTOPRAZOLE SODIUM [Concomitant]
  8. LIPITOR [Concomitant]
  9. NORVASC [Concomitant]
  10. LASIX [Concomitant]
  11. K-DUR 10 [Concomitant]
  12. EZETIMIBE [Concomitant]

REACTIONS (11)
  - BACTERIAL INFECTION [None]
  - CELLULITIS [None]
  - COAGULOPATHY [None]
  - DECREASED APPETITE [None]
  - HYPOGLYCAEMIA [None]
  - INFLUENZA [None]
  - NAUSEA [None]
  - PNEUMONIA [None]
  - STAPHYLOCOCCAL INFECTION [None]
  - VOMITING [None]
  - WEIGHT DECREASED [None]
